FAERS Safety Report 6498881-3 (Version None)
Quarter: 2009Q4

REPORT INFORMATION
  Report Type: 
  Country: None (occurrence: None)
  Receive Date: 20091127
  Receipt Date: 20081211
  Transmission Date: 20100525
  Serious: No
  Sender: FDA-Public Use
  Company Number: 281729

PATIENT
  Age: 38 Year
  Sex: Female

DRUGS (3)
  1. NOVOLOG [Suspect]
     Indication: TYPE 1 DIABETES MELLITUS
     Dosage: SLIDING SCALE, QD, SUBCUTANEOUS
     Route: 058
     Dates: start: 20081101
  2. LEVEMIR [Suspect]
     Indication: TYPE 1 DIABETES MELLITUS
     Dosage: 8 IU, QD, SUBCUTANEOUS
     Route: 058
     Dates: start: 20081101
  3. NOVOLOG FLEXPEN  REGIMEN # 2 (INSULIN ASPART) SOLUTION FOR INJECTION, [Suspect]
     Indication: TYPE 1 DIABETES MELLITUS
     Dosage: SLIDING SCALE, QD, SUBCUTANEOUS
     Route: 058
     Dates: start: 20081101

REACTIONS (1)
  - INJECTION SITE HAEMATOMA [None]
